FAERS Safety Report 11935310 (Version 1)
Quarter: 2016Q1

REPORT INFORMATION
  Report Type: Spontaneous
  Country: US (occurrence: US)
  Receive Date: 20160121
  Receipt Date: 20160121
  Transmission Date: 20160526
  Serious: Yes (Other)
  Sender: FDA-Public Use
  Company Number: US-PFIZER INC-2016008100

PATIENT
  Sex: Female

DRUGS (1)
  1. ADVIL [Suspect]
     Active Substance: IBUPROFEN
     Dosage: UNKNOWN

REACTIONS (5)
  - Drug hypersensitivity [Unknown]
  - Mouth swelling [Unknown]
  - Dyspnoea [Unknown]
  - Swollen tongue [Unknown]
  - Eye swelling [Unknown]
